FAERS Safety Report 23768860 (Version 2)
Quarter: 2024Q2

REPORT INFORMATION
  Report Type: Spontaneous
  Country: NL (occurrence: NL)
  Receive Date: 20240422
  Receipt Date: 20240430
  Transmission Date: 20240716
  Serious: Yes (Hospitalization, Other)
  Sender: FDA-Public Use
  Company Number: NL-JNJFOC-20240464442

PATIENT
  Age: 23 Year
  Sex: Male

DRUGS (1)
  1. HALOPERIDOL [Suspect]
     Active Substance: HALOPERIDOL
     Indication: Product used for unknown indication
     Dosage: WITHIN SEVERAL HOURS
     Route: 065

REACTIONS (11)
  - Tachypnoea [Recovered/Resolved]
  - Depressed level of consciousness [Recovered/Resolved]
  - Metabolic acidosis [Recovered/Resolved]
  - Muscle tightness [Recovered/Resolved]
  - Neuroleptic malignant syndrome [Recovered/Resolved]
  - Tachycardia [Recovered/Resolved]
  - Hypotension [Recovered/Resolved]
  - Hyperhidrosis [Recovered/Resolved]
  - Cogwheel rigidity [Recovered/Resolved]
  - Tremor [Recovered/Resolved]
  - Overdose [Unknown]
